FAERS Safety Report 10885209 (Version 1)
Quarter: 2015Q1

REPORT INFORMATION
  Report Type: Spontaneous
  Country: US (occurrence: US)
  Receive Date: 20150304
  Receipt Date: 20150304
  Transmission Date: 20150721
  Serious: Yes (Hospitalization, Other)
  Sender: FDA-Public Use
  Company Number: US-AMGEN-USASP2015018734

PATIENT
  Age: 59 Year
  Sex: Female

DRUGS (1)
  1. ENBREL [Suspect]
     Active Substance: ETANERCEPT
     Indication: RHEUMATOID ARTHRITIS
     Dosage: UNK MG, QWK
     Route: 065
     Dates: start: 20090101, end: 2012

REACTIONS (6)
  - Diaphragmatic paralysis [Not Recovered/Not Resolved]
  - Aortic valve disease [Recovered/Resolved]
  - Pericardial effusion [Recovered/Resolved]
  - Surgery [Recovered/Resolved]
  - Intervertebral disc degeneration [Recovered/Resolved]
  - Dyspnoea [Not Recovered/Not Resolved]

NARRATIVE: CASE EVENT DATE: 2014
